FAERS Safety Report 7547292-8 (Version None)
Quarter: 2011Q2

REPORT INFORMATION
  Report Type: 
  Country: None (occurrence: None)
  Receive Date: 20110614
  Receipt Date: 20090217
  Transmission Date: 20111010
  Serious: Yes (Death, Other)
  Sender: FDA-Public Use
  Company Number: US-BAYER-2011-006569

PATIENT
  Age: 56 Year
  Sex: Male
  Weight: 111 kg

DRUGS (15)
  1. PRAVACHOL [Concomitant]
     Dosage: 80 MG
     Route: 048
  2. PROTAMINE SULFATE [Concomitant]
     Dosage: UNK
     Route: 042
     Dates: start: 20030724
  3. TRASYLOL [Suspect]
     Indication: MITRAL VALVE REPLACEMENT
     Dosage: 200 ML LOADING DOSE, 50 ML/HOUR DRIP
     Route: 042
     Dates: start: 20030724, end: 20030724
  4. HYDROCHLOROTHIAZIDE [Concomitant]
     Dosage: 25 MG DAILY
     Route: 048
  5. PLAVIX [Concomitant]
     Dosage: 75 MG DAILY
     Route: 048
  6. NITROGLYCERIN [Concomitant]
     Dosage: UNK
     Route: 042
     Dates: start: 20030724
  7. HEPARIN [Concomitant]
     Dosage: UNK
     Route: 042
     Dates: start: 20030724
  8. ALTACE [Concomitant]
     Dosage: 10 MG DAILY
     Route: 048
  9. LASIX [Concomitant]
     Dosage: 40 MG
     Route: 042
  10. ATENOLOL [Concomitant]
     Dosage: 100 MG DAILY
     Route: 048
  11. ACETYLSALICYLIC ACID SRT [Concomitant]
     Dosage: 81 MG DAILY
     Route: 048
  12. RED BLOOD CELLS [Concomitant]
     Dosage: 2 UNITS
     Dates: start: 20030724
  13. PLATELETS [Concomitant]
     Dosage: 1 UNIT
     Dates: start: 20030724
  14. TRASYLOL [Suspect]
     Indication: CORONARY ARTERY BYPASS
  15. LASIX [Concomitant]
     Dosage: 60 MG
     Route: 042
     Dates: start: 20030724

REACTIONS (15)
  - DEATH [None]
  - RENAL INJURY [None]
  - RENAL FAILURE ACUTE [None]
  - EMOTIONAL DISTRESS [None]
  - MULTI-ORGAN FAILURE [None]
  - STRESS [None]
  - FEAR [None]
  - ANXIETY [None]
  - UNEVALUABLE EVENT [None]
  - RIGHT VENTRICULAR FAILURE [None]
  - RENAL FAILURE [None]
  - RENAL IMPAIRMENT [None]
  - PAIN [None]
  - INJURY [None]
  - RESPIRATORY FAILURE [None]
